FAERS Safety Report 6358296-5 (Version None)
Quarter: 2009Q3

REPORT INFORMATION
  Report Type: 
  Country: None (occurrence: None)
  Receive Date: 20090916
  Receipt Date: 20090908
  Transmission Date: 20100115
  Serious: Yes (Other)
  Sender: FDA-Public Use
  Company Number: PHHY2009BR24559

PATIENT
  Age: 77 Year
  Sex: Female
  Weight: 85 kg

DRUGS (5)
  1. DIOVAN AMLO FIX [Suspect]
     Indication: HYPERTENSION
     Dosage: 1 TABLET (320/5 MG) DAILY
     Route: 048
     Dates: start: 20080101
  2. PARACETAMOL WITH CODEINE PHOSPHATE [Concomitant]
     Indication: CARDIOVASCULAR DISORDER
     Dosage: 1 DF, BID
     Route: 048
  3. AMITRIPTYLINE [Concomitant]
     Dosage: 1 TABLET (25 MG) IN THE MORNING AND 1 TABLET (25 MG) IN THE NIGHT
     Route: 048
  4. INSULIN HUMAN [Concomitant]
     Indication: DIABETES MELLITUS
     Dosage: 30 UNITS IN THE MORNING AND 20 UNITS IN THE AFTERNOON
  5. DIPIRONA [Concomitant]
     Indication: PAIN
     Dosage: EVERY 6 HRS PRN

REACTIONS (4)
  - ACTIVITIES OF DAILY LIVING IMPAIRED [None]
  - GAIT DISTURBANCE [None]
  - TOE AMPUTATION [None]
  - URINARY INCONTINENCE [None]
